FAERS Safety Report 4839181-4 (Version None)
Quarter: 2005Q4

REPORT INFORMATION
  Report Type: 
  Country: None (occurrence: None)
  Receive Date: 20051031
  Receipt Date: 20050519
  Transmission Date: 20060501
  Serious: No
  Sender: FDA-Public Use
  Company Number: 200514951US

PATIENT

DRUGS (1)
  1. KETEK [Suspect]

REACTIONS (1)
  - DYSGEUSIA [None]
